FAERS Safety Report 20002201 (Version 1)
Quarter: 2021Q4

REPORT INFORMATION
  Report Type: Spontaneous
  Country: US (occurrence: US)
  Receive Date: 20211027
  Receipt Date: 20211027
  Transmission Date: 20220304
  Serious: No
  Sender: FDA-Public Use
  Company Number: US-BRISTOL-MYERS SQUIBB COMPANY-BMS-2021-108342

PATIENT
  Age: 74 Year
  Sex: Male
  Weight: 74.84 kg

DRUGS (2)
  1. ELIQUIS [Suspect]
     Active Substance: APIXABAN
     Indication: Pulmonary embolism
     Dosage: 10 MILLIGRAM, Q12H
     Route: 065
     Dates: start: 20210928
  2. ELIQUIS [Suspect]
     Active Substance: APIXABAN
     Dosage: 5 MILLIGRAM, Q12H
     Route: 065

REACTIONS (4)
  - Abdominal distension [Unknown]
  - Nausea [Unknown]
  - Bowel movement irregularity [Unknown]
  - Product taste abnormal [Unknown]
